APPROVED DRUG PRODUCT: BALANCED SALT
Active Ingredient: CALCIUM CHLORIDE; MAGNESIUM CHLORIDE; POTASSIUM CHLORIDE; SODIUM ACETATE; SODIUM CHLORIDE; SODIUM CITRATE
Strength: 0.48MG/ML;0.3MG/ML;0.75MG/ML;3.9MG/ML;6.4MG/ML;1.7MG/ML
Dosage Form/Route: SOLUTION;IRRIGATION
Application: A091387 | Product #001 | TE Code: AT
Applicant: B BRAUN MEDICAL INC
Approved: Feb 3, 2010 | RLD: No | RS: No | Type: RX